FAERS Safety Report 24982711 (Version 2)
Quarter: 2025Q3

REPORT INFORMATION
  Report Type: Spontaneous
  Country: US (occurrence: US)
  Receive Date: 20250218
  Receipt Date: 20250809
  Transmission Date: 20251021
  Serious: Yes (Other)
  Sender: ALEXION PHARMACEUTICALS
  Company Number: US-AstraZeneca-CH-00787847A

PATIENT
  Age: 58 Year
  Sex: Male
  Weight: 92.971 kg

DRUGS (1)
  1. SOLIRIS [Suspect]
     Active Substance: ECULIZUMAB
     Indication: Myasthenia gravis
     Dosage: 1200 MILLIGRAM, Q2W
     Dates: start: 2023

REACTIONS (2)
  - Myasthenia gravis [Recovered/Resolved]
  - Insurance issue [Unknown]

NARRATIVE: CASE EVENT DATE: 20241201
